FAERS Safety Report 8172446-X (Version None)
Quarter: 2012Q1

REPORT INFORMATION
  Report Type: 
  Country: None (occurrence: None)
  Receive Date: 20120224
  Receipt Date: 20120224
  Transmission Date: 20120608
  Serious: Yes (Hospitalization)
  Sender: FDA-Public Use
  Company Number: None

PATIENT
  Age: 64 Year
  Sex: Male
  Weight: 108.6 kg

DRUGS (1)
  1. IBUPROFEN TABLETS [Suspect]
     Indication: PAIN
     Dosage: PO
     Route: 048
     Dates: end: 20110923

REACTIONS (1)
  - RENAL IMPAIRMENT [None]
